FAERS Safety Report 25213770 (Version 1)
Quarter: 2025Q2

REPORT INFORMATION
  Report Type: Spontaneous
  Country: US (occurrence: US)
  Receive Date: 20250418
  Receipt Date: 20250418
  Transmission Date: 20250716
  Serious: No
  Sender: PHARMING GROUP
  Company Number: US-PHARMING-PHAUS2025000550

PATIENT

DRUGS (2)
  1. RUCONEST [Suspect]
     Active Substance: CONESTAT ALFA
     Indication: Hereditary angioedema
     Route: 042
     Dates: start: 202305
  2. BENADRYL [Concomitant]
     Active Substance: DIPHENHYDRAMINE HYDROCHLORIDE
     Indication: Product used for unknown indication
     Route: 042

REACTIONS (3)
  - Weight decreased [Unknown]
  - Underdose [Unknown]
  - Intentional product use issue [Unknown]
